FAERS Safety Report 12282029 (Version 1)
Quarter: 2016Q2

REPORT INFORMATION
  Report Type: Spontaneous
  Country: CA (occurrence: CA)
  Receive Date: 20160419
  Receipt Date: 20160419
  Transmission Date: 20160815
  Serious: Yes (Hospitalization, Other)
  Sender: FDA-Public Use
  Company Number: CA-ASTRAZENECA-2016SE39035

PATIENT
  Age: 28 Year
  Sex: Female

DRUGS (8)
  1. ATROVENT [Concomitant]
     Active Substance: IPRATROPIUM BROMIDE
  2. LANTUS [Concomitant]
     Active Substance: INSULIN GLARGINE
  3. FORXIGA [Suspect]
     Active Substance: DAPAGLIFLOZIN
     Indication: TYPE 1 DIABETES MELLITUS
     Route: 048
  4. SYNTHROID [Concomitant]
     Active Substance: LEVOTHYROXINE SODIUM
  5. CIPRALEX [Concomitant]
     Active Substance: ESCITALOPRAM OXALATE
  6. LUCENTIS [Concomitant]
     Active Substance: RANIBIZUMAB
  7. NOVORAPID [Concomitant]
     Active Substance: INSULIN ASPART
  8. VENTOLIN [Concomitant]
     Active Substance: ALBUTEROL SULFATE

REACTIONS (2)
  - Diabetic ketoacidosis [Recovered/Resolved]
  - Product use issue [Unknown]
